FAERS Safety Report 5274398-9 (Version None)
Quarter: 2007Q1

REPORT INFORMATION
  Report Type: 
  Country: None (occurrence: None)
  Receive Date: 20070323
  Receipt Date: 20070309
  Transmission Date: 20070707
  Serious: Yes (Other)
  Sender: FDA-Public Use
  Company Number: AU-PFIZER INC-2007009155

PATIENT
  Age: 47 Year
  Sex: Female

DRUGS (3)
  1. LIPITOR [Suspect]
     Indication: PULMONARY EMBOLISM
  2. FOLIC ACID [Concomitant]
  3. ASTRIX [Concomitant]

REACTIONS (4)
  - AMNESIA [None]
  - DISORIENTATION [None]
  - DYSPHASIA [None]
  - SPEECH DISORDER [None]
